FAERS Safety Report 8613026-9 (Version None)
Quarter: 2012Q3

REPORT INFORMATION
  Report Type: 
  Country: None (occurrence: None)
  Receive Date: 20120822
  Receipt Date: 20120726
  Transmission Date: 20120928
  Serious: Yes (Other)
  Sender: FDA-Public Use
  Company Number: US-009507513-2012SP022699

PATIENT

DRUGS (3)
  1. VICTRELIS [Suspect]
     Indication: HEPATITIS C
     Dosage: UNK UNK, UNKNOWN
     Route: 065
     Dates: start: 20120522
  2. PEG-INTRON [Suspect]
     Indication: HEPATITIS C
     Dosage: 120 MICROGRAM, QW
     Route: 058
     Dates: start: 20120424
  3. REBETOL [Suspect]
     Indication: HEPATITIS C
     Dosage: UNK UNK, UNKNOWN
     Route: 065
     Dates: start: 20120424

REACTIONS (10)
  - ALCOHOL ABUSE [None]
  - PRURITUS [None]
  - INJECTION SITE ERYTHEMA [None]
  - TOOTH FRACTURE [None]
  - OVERDOSE [None]
  - PSORIASIS [None]
  - EJACULATION FAILURE [None]
  - RASH [None]
  - INFLUENZA [None]
  - TOOTH EXTRACTION [None]
